FAERS Safety Report 17127494 (Version 3)
Quarter: 2021Q1

REPORT INFORMATION
  Report Type: Spontaneous
  Country: JP (occurrence: JP)
  Receive Date: 20191209
  Receipt Date: 20210205
  Transmission Date: 20210419
  Serious: Yes (Other)
  Sender: FDA-Public Use
  Company Number: JP-GLAXOSMITHKLINE-JP2019JPN141602

PATIENT
  Age: 86 Year
  Sex: Male

DRUGS (8)
  1. AVOLVE [Suspect]
     Active Substance: DUTASTERIDE
     Indication: BENIGN PROSTATIC HYPERPLASIA
     Dosage: UNK
     Route: 048
     Dates: start: 20091016, end: 201106
  2. MUCOSTA [Concomitant]
     Active Substance: REBAMIPIDE
     Dosage: UNK
  3. AVOLVE [Suspect]
     Active Substance: DUTASTERIDE
     Dosage: UNK
     Route: 048
     Dates: start: 201807
  4. AVOLVE [Suspect]
     Active Substance: DUTASTERIDE
     Dosage: UNK
     Route: 048
  5. TADALAFIL. [Suspect]
     Active Substance: TADALAFIL
     Indication: DYSURIA
     Dosage: UNK
     Route: 048
     Dates: start: 2019, end: 20191125
  6. AVOLVE [Suspect]
     Active Substance: DUTASTERIDE
     Dosage: UNK
     Route: 048
     Dates: end: 20191125
  7. TADALAFIL. [Suspect]
     Active Substance: TADALAFIL
     Indication: BENIGN PROSTATIC HYPERPLASIA
     Dosage: UNK
     Dates: start: 2018, end: 201906
  8. LOXONIN [Concomitant]
     Active Substance: LOXOPROFEN SODIUM
     Indication: BACK PAIN
     Dosage: UNK
     Route: 048

REACTIONS (15)
  - Malaise [Not Recovered/Not Resolved]
  - Dysuria [Unknown]
  - Eyelid disorder [Unknown]
  - Back pain [Unknown]
  - Weight decreased [Unknown]
  - Therapeutic product effect incomplete [Unknown]
  - Platelet count decreased [Unknown]
  - Therapy cessation [Unknown]
  - Asthenopia [Not Recovered/Not Resolved]
  - Hot flush [Unknown]
  - Cataract [Recovered/Resolved]
  - Face oedema [Unknown]
  - Blood pressure systolic increased [Unknown]
  - Vision blurred [Not Recovered/Not Resolved]
  - Nocturia [Unknown]

NARRATIVE: CASE EVENT DATE: 2014
